FAERS Safety Report 6852206-X (Version None)
Quarter: 2010Q3

REPORT INFORMATION
  Report Type: 
  Country: None (occurrence: None)
  Receive Date: 20100717
  Receipt Date: 20071107
  Transmission Date: 20110219
  Serious: No
  Sender: FDA-Public Use
  Company Number: US-PFIZER INC-2007095475

PATIENT
  Sex: Female
  Weight: 76.4 kg

DRUGS (1)
  1. CHANTIX [Suspect]
     Indication: SMOKING CESSATION THERAPY
     Dates: start: 20070901, end: 20071028

REACTIONS (5)
  - DYSPHONIA [None]
  - INFLUENZA [None]
  - LETHARGY [None]
  - PYREXIA [None]
  - WEIGHT DECREASED [None]
